FAERS Safety Report 20816983 (Version 3)
Quarter: 2024Q2

REPORT INFORMATION
  Report Type: Report from Study
  Country: US (occurrence: US)
  Receive Date: 20220512
  Receipt Date: 20240516
  Transmission Date: 20240716
  Serious: Yes (Hospitalization, Other)
  Sender: FDA-Public Use
  Company Number: US-ORG100014127-2022000029

PATIENT
  Age: 43 Year
  Sex: Female

DRUGS (13)
  1. LYSODREN [Suspect]
     Active Substance: MITOTANE
     Indication: Adrenal gland cancer
     Route: 048
     Dates: start: 20211214
  2. LYSODREN [Suspect]
     Active Substance: MITOTANE
     Indication: Adrenal gland cancer
     Dosage: 04 TABLETS 2 TIMES A DAY
     Route: 048
     Dates: start: 20211214
  3. LYSODREN [Suspect]
     Active Substance: MITOTANE
     Indication: Adrenal gland cancer
     Dosage: 02 TABLETS IN THE MORNING AND 04 TABLETS IN THE EVENING
     Route: 048
     Dates: start: 20211214
  4. LYSODREN [Suspect]
     Active Substance: MITOTANE
     Indication: Adrenal gland cancer
     Dosage: INCREASE TO 3000 MG BID
     Route: 048
     Dates: start: 202204
  5. LYSODREN [Suspect]
     Active Substance: MITOTANE
     Indication: Adrenal gland cancer
     Dosage: 04 TABLETS IN THE MORNING AND 04 TABLETS IN THE EVENING
     Route: 048
     Dates: end: 202307
  6. Carisoprodol Tab 350 mg [Concomitant]
     Indication: Product used for unknown indication
  7. Hydroco/APAP Tab 5-352 mg [Concomitant]
     Indication: Product used for unknown indication
  8. Hydrocort Cre 1% [Concomitant]
     Indication: Product used for unknown indication
  9. Lorazepam Tab 1 Mg [Concomitant]
     Indication: Product used for unknown indication
  10. PRAVASTATIN [Concomitant]
     Active Substance: PRAVASTATIN
     Indication: Product used for unknown indication
  11. CORTEF TAB 5MG [Concomitant]
     Indication: Product used for unknown indication
  12. LEVOTHYROXIN TAB 112MCG [Concomitant]
     Indication: Product used for unknown indication
  13. VITAMIN A TAB 8000UNIT [Concomitant]
     Indication: Product used for unknown indication

REACTIONS (5)
  - Seizure [Unknown]
  - Abdominal discomfort [Not Recovered/Not Resolved]
  - Decreased appetite [Not Recovered/Not Resolved]
  - Diarrhoea [Not Recovered/Not Resolved]
  - Fatigue [Not Recovered/Not Resolved]

NARRATIVE: CASE EVENT DATE: 20211215
